FAERS Safety Report 4372377-7 (Version None)
Quarter: 2004Q2

REPORT INFORMATION
  Report Type: 
  Country: None (occurrence: None)
  Receive Date: 20040602
  Receipt Date: 20040504
  Transmission Date: 20050107
  Serious: Yes (Hospitalization)
  Sender: FDA-Public Use
  Company Number: 2004212992DE

PATIENT
  Sex: Female

DRUGS (1)
  1. ROGAINE [Suspect]
     Indication: ALOPECIA
     Dosage: 2 ML, QD, TOPICAL
     Route: 061
     Dates: start: 20040503

REACTIONS (3)
  - ANGINA PECTORIS [None]
  - ELECTROCARDIOGRAM ABNORMAL [None]
  - TACHYCARDIA [None]
